FAERS Safety Report 15013489 (Version 2)
Quarter: 2018Q3

REPORT INFORMATION
  Report Type: Spontaneous
  Country: US (occurrence: US)
  Receive Date: 20180614
  Receipt Date: 20180705
  Transmission Date: 20181010
  Serious: Yes (Life-Threatening, Hospitalization)
  Sender: FDA-Public Use
  Company Number: LB-ALLERGAN-1830550US

PATIENT
  Age: 27 Year
  Sex: Female

DRUGS (1)
  1. BOTOX [Suspect]
     Active Substance: ONABOTULINUMTOXINA
     Indication: GASTROINTESTINAL MOTILITY DISORDER
     Dosage: 100 UNITS, SINGLE
     Route: 030

REACTIONS (5)
  - Muscular weakness [Recovering/Resolving]
  - Headache [Unknown]
  - Off label use [Unknown]
  - Botulism [Recovering/Resolving]
  - Dyspnoea [Recovered/Resolved]
